FAERS Safety Report 15406340 (Version 1)
Quarter: 2018Q3

REPORT INFORMATION
  Report Type: Spontaneous
  Country: US (occurrence: US)
  Receive Date: 20180919
  Receipt Date: 20180919
  Transmission Date: 20181010
  Serious: Yes (Disabling)
  Sender: FDA-Public Use
  Company Number: None

PATIENT
  Age: 69 Year
  Sex: Male
  Weight: 128.25 kg

DRUGS (3)
  1. AMLOPIN [Concomitant]
     Active Substance: AMLODIPINE BESYLATE
  2. LEVOTHYROXIN (SYN) 125MCG TAB [Suspect]
     Active Substance: LEVOTHYROXINE
     Indication: THYROIDECTOMY
     Dosage: ?          QUANTITY:1 TABLET(S);?
     Route: 048
     Dates: start: 20150904, end: 20150906
  3. CALCIUM [Concomitant]
     Active Substance: CALCIUM

REACTIONS (7)
  - Disability [None]
  - Muscle spasms [None]
  - Muscle tightness [None]
  - Gait disturbance [None]
  - Post procedural haemorrhage [None]
  - Muscle atrophy [None]
  - Asthenia [None]

NARRATIVE: CASE EVENT DATE: 20150904
